FAERS Safety Report 8240225-0 (Version None)
Quarter: 2012Q1

REPORT INFORMATION
  Report Type: 
  Country: None (occurrence: None)
  Receive Date: 20120309
  Receipt Date: 20110505
  Transmission Date: 20120608
  Serious: Yes (Other)
  Sender: FDA-Public Use
  Company Number: PHHY2010US74055

PATIENT
  Age: 43 Year
  Sex: Male

DRUGS (5)
  1. EXTAVIA [Suspect]
     Indication: MULTIPLE SCLEROSIS
     Dosage: 0.25 MG, QOD, SUBCUTANEOUS : 0.125 MG, QOD, SUBCUTANEOUS : 0.25 MG, QOD, SUBCUTANEOUS
     Route: 058
     Dates: start: 20100801
  2. EXTAVIA [Suspect]
     Indication: MULTIPLE SCLEROSIS
     Dosage: 0.25 MG, QOD, SUBCUTANEOUS : 0.125 MG, QOD, SUBCUTANEOUS : 0.25 MG, QOD, SUBCUTANEOUS
     Route: 058
     Dates: start: 20100907
  3. NEURONTIN [Concomitant]
  4. NUVIGIL [Concomitant]
  5. NAPROXEN (ALEVE) [Concomitant]

REACTIONS (4)
  - HEPATIC ENZYME INCREASED [None]
  - MULTIPLE SCLEROSIS RELAPSE [None]
  - NEUROPATHY PERIPHERAL [None]
  - MUSCLE SPASMS [None]
